FAERS Safety Report 5978287-3 (Version None)
Quarter: 2008Q4

REPORT INFORMATION
  Report Type: 
  Country: None (occurrence: None)
  Receive Date: 20081204
  Receipt Date: 20081119
  Transmission Date: 20090506
  Serious: Yes (Disabling)
  Sender: FDA-Public Use
  Company Number: MY-ASTRAZENECA-2008AP05125

PATIENT
  Age: 13944 Day
  Sex: Male
  Weight: 106.5 kg

DRUGS (4)
  1. SYMBICORT [Suspect]
     Indication: ASTHMA
     Dosage: 160/4.5 UG 1 INHALATION BID
     Route: 055
     Dates: start: 20080509, end: 20080623
  2. SYMBICORT [Suspect]
     Dosage: 160/4.5 UG PRN
     Route: 055
     Dates: start: 20080509, end: 20080623
  3. NASONEX [Concomitant]
     Indication: RHINITIS
     Dates: start: 20040416
  4. CLARITIN [Concomitant]
     Indication: RHINITIS
     Route: 048
     Dates: start: 20080405

REACTIONS (3)
  - ASTHMA [None]
  - MALAISE [None]
  - SINUSITIS [None]
